FAERS Safety Report 26027745 (Version 1)
Quarter: 2025Q4

REPORT INFORMATION
  Report Type: Spontaneous
  Country: US (occurrence: US)
  Receive Date: 20251111
  Receipt Date: 20251111
  Transmission Date: 20260118
  Serious: No
  Sender: BOEHRINGER INGELHEIM
  Company Number: US-Komodo Health-a23aa00000BuzX7AAJ

PATIENT
  Sex: Female

DRUGS (1)
  1. STIOLTO RESPIMAT [Suspect]
     Active Substance: OLODATEROL HYDROCHLORIDE\TIOTROPIUM BROMIDE MONOHYDRATE
     Indication: Product used for unknown indication
     Dosage: 2 TIMES A DAY
     Dates: start: 202507

REACTIONS (5)
  - Dyspnoea [Unknown]
  - Respiration abnormal [Unknown]
  - Nocturia [Unknown]
  - Hot flush [Unknown]
  - Dysuria [Unknown]
